FAERS Safety Report 8171541-9 (Version None)
Quarter: 2012Q1

REPORT INFORMATION
  Report Type: 
  Country: None (occurrence: None)
  Receive Date: 20120104
  Receipt Date: 20111003
  Transmission Date: 20120608
  Serious: No
  Sender: FDA-Public Use
  Company Number: 2011HGS-002538

PATIENT
  Age: 38 Year
  Sex: Female
  Weight: 56.6996 kg

DRUGS (3)
  1. PREDNISONE [Concomitant]
  2. PLAQUENIL (HYDROXYCHLOROQUINE SULFATE) (HYDROXYCHLOROQUINE SULFATE) [Concomitant]
  3. BENLYSTA [Suspect]
     Indication: SYSTEMIC LUPUS ERYTHEMATOSUS
     Dosage: 1 IN 2 WK, INTRAVENOUS DRIP
     Route: 041
     Dates: start: 20110818, end: 20110818

REACTIONS (2)
  - MENSTRUATION DELAYED [None]
  - WEIGHT INCREASED [None]
